FAERS Safety Report 10253739 (Version 13)
Quarter: 2024Q1

REPORT INFORMATION
  Report Type: Spontaneous
  Country: JP (occurrence: JP)
  Receive Date: 20140623
  Receipt Date: 20240318
  Transmission Date: 20240410
  Serious: Yes (Life-Threatening, Hospitalization, Other)
  Sender: FDA-Public Use
  Company Number: JP-PFIZER INC-2014165904

PATIENT
  Age: 13 Year
  Sex: Male
  Weight: 41.6 kg

DRUGS (15)
  1. BENEFIX [Suspect]
     Active Substance: COAGULATION FACTOR IX RECOMBINANT HUMAN\ISOPROPYL ALCOHOL
     Indication: Factor IX deficiency
     Dosage: 1000 IU, 2X/WEEK
     Route: 042
     Dates: start: 20100212, end: 20140607
  2. BENEFIX [Suspect]
     Active Substance: COAGULATION FACTOR IX RECOMBINANT HUMAN\ISOPROPYL ALCOHOL
     Indication: Immune tolerance induction
     Dosage: 2000 IU, 2X/DAY
     Route: 042
     Dates: start: 20140608, end: 20140609
  3. BENEFIX [Suspect]
     Active Substance: COAGULATION FACTOR IX RECOMBINANT HUMAN\ISOPROPYL ALCOHOL
     Dosage: 2000 IU, 1X/DAY
     Route: 041
     Dates: start: 20140608, end: 20140609
  4. BENEFIX [Suspect]
     Active Substance: COAGULATION FACTOR IX RECOMBINANT HUMAN\ISOPROPYL ALCOHOL
     Dosage: 2000 IU, 2X/DAY
     Route: 042
     Dates: start: 20140610, end: 20140612
  5. BENEFIX [Suspect]
     Active Substance: COAGULATION FACTOR IX RECOMBINANT HUMAN\ISOPROPYL ALCOHOL
     Dosage: 2000 IU, 2X/DAY
     Route: 041
     Dates: start: 20140610, end: 20140612
  6. BENEFIX [Suspect]
     Active Substance: COAGULATION FACTOR IX RECOMBINANT HUMAN\ISOPROPYL ALCOHOL
     Dosage: 2000 IU, 1X/DAY
     Route: 042
     Dates: start: 20140613, end: 20140615
  7. BENEFIX [Suspect]
     Active Substance: COAGULATION FACTOR IX RECOMBINANT HUMAN\ISOPROPYL ALCOHOL
     Dosage: 2000 IU, 2X/DAY
     Route: 041
     Dates: start: 20140613, end: 20140615
  8. BENEFIX [Suspect]
     Active Substance: COAGULATION FACTOR IX RECOMBINANT HUMAN\ISOPROPYL ALCOHOL
     Dosage: 2000 IU, 1X/DAY
     Route: 042
     Dates: start: 20140616, end: 20140618
  9. BENEFIX [Suspect]
     Active Substance: COAGULATION FACTOR IX RECOMBINANT HUMAN\ISOPROPYL ALCOHOL
     Dosage: 1000 IU, 2X/DAY
     Route: 041
     Dates: start: 20140616, end: 20140618
  10. BENEFIX [Suspect]
     Active Substance: COAGULATION FACTOR IX RECOMBINANT HUMAN\ISOPROPYL ALCOHOL
     Dosage: 2000 IU, 1X/DAY
     Route: 042
     Dates: start: 20140619, end: 20140619
  11. BENEFIX [Suspect]
     Active Substance: COAGULATION FACTOR IX RECOMBINANT HUMAN\ISOPROPYL ALCOHOL
     Dosage: 500 IU, 1X/DAY
     Route: 041
     Dates: start: 20140619, end: 20140619
  12. BENEFIX [Suspect]
     Active Substance: COAGULATION FACTOR IX RECOMBINANT HUMAN\ISOPROPYL ALCOHOL
     Dosage: 2000 IU, 1X/DAY
     Route: 042
     Dates: start: 20140620, end: 20140620
  13. BENEFIX [Suspect]
     Active Substance: COAGULATION FACTOR IX RECOMBINANT HUMAN\ISOPROPYL ALCOHOL
     Dosage: 500 IU, 2X/DAY
     Route: 041
     Dates: start: 20140620, end: 20140620
  14. BENEFIX [Suspect]
     Active Substance: COAGULATION FACTOR IX RECOMBINANT HUMAN\ISOPROPYL ALCOHOL
     Dosage: 2000 IU, 1X/DAY
     Route: 042
     Dates: start: 20140621, end: 20140621
  15. BENEFIX [Suspect]
     Active Substance: COAGULATION FACTOR IX RECOMBINANT HUMAN\ISOPROPYL ALCOHOL
     Dosage: 2000 IU, ALTERNATE DAY (ON MONDAY, WEDNESDAY, AND FRIDAY)
     Route: 041
     Dates: start: 20140625, end: 20140808

REACTIONS (5)
  - Factor IX inhibition [Recovering/Resolving]
  - Hypersensitivity [Unknown]
  - Muscle haemorrhage [Recovering/Resolving]
  - Urticaria [Unknown]
  - Off label use [Unknown]

NARRATIVE: CASE EVENT DATE: 20140608
